FAERS Safety Report 13180560 (Version 2)
Quarter: 2017Q1

REPORT INFORMATION
  Report Type: Report from Study
  Country: CA (occurrence: CA)
  Receive Date: 20170202
  Receipt Date: 20170301
  Transmission Date: 20170428
  Serious: Yes (Death, Hospitalization)
  Sender: FDA-Public Use
  Company Number: PHHY2017CA015867

PATIENT
  Sex: Female

DRUGS (1)
  1. ACLASTA [Suspect]
     Active Substance: ZOLEDRONIC ACID
     Indication: OSTEOPOROSIS
     Dosage: 5 MG, UNK
     Route: 042
     Dates: start: 20161026

REACTIONS (4)
  - Humerus fracture [Fatal]
  - Fall [Fatal]
  - Hip fracture [Fatal]
  - Cardiogenic shock [Fatal]
